FAERS Safety Report 7063472-2 (Version None)
Quarter: 2010Q4

REPORT INFORMATION
  Report Type: 
  Country: None (occurrence: None)
  Receive Date: 20101026
  Receipt Date: 20100503
  Transmission Date: 20110411
  Serious: No
  Sender: FDA-Public Use
  Company Number: US-ABBOTT-10P-163-0641367-00

PATIENT
  Age: 24 Year
  Sex: Female
  Weight: 46.308 kg

DRUGS (2)
  1. LUPRON DEPOT [Suspect]
     Indication: ABDOMINAL PAIN
     Route: 050
     Dates: start: 20100412
  2. LUPRON DEPOT [Suspect]
     Indication: ENDOMETRIOSIS

REACTIONS (5)
  - DIARRHOEA [None]
  - MALAISE [None]
  - NAUSEA [None]
  - PYREXIA [None]
  - SINUS CONGESTION [None]
